FAERS Safety Report 21679399 (Version 2)
Quarter: 2022Q4

REPORT INFORMATION
  Report Type: Spontaneous
  Country: US (occurrence: US)
  Receive Date: 20221205
  Receipt Date: 20221205
  Transmission Date: 20230112
  Serious: Yes (Other)
  Sender: FDA-Public Use
  Company Number: US-JNJFOC-20221157218

PATIENT
  Age: 75 Year
  Sex: Female
  Weight: 98.4 kg

DRUGS (6)
  1. OPSUMIT [Suspect]
     Active Substance: MACITENTAN
     Indication: Pulmonary arterial hypertension
     Route: 048
     Dates: end: 202211
  2. TYVASO [Suspect]
     Active Substance: TREPROSTINIL
     Indication: Pulmonary arterial hypertension
     Route: 055
     Dates: start: 20221104
  3. TYVASO [Suspect]
     Active Substance: TREPROSTINIL
     Route: 055
     Dates: start: 202211, end: 202211
  4. TYVASO [Suspect]
     Active Substance: TREPROSTINIL
     Route: 055
     Dates: start: 202211
  5. ADEMPAS [Concomitant]
     Active Substance: RIOCIGUAT
  6. ELIQUIS [Concomitant]
     Active Substance: APIXABAN

REACTIONS (7)
  - Pulmonary arterial hypertension [Unknown]
  - Chills [Not Recovered/Not Resolved]
  - Vomiting [Recovered/Resolved]
  - Pulmonary pain [Recovered/Resolved]
  - Nasopharyngitis [Not Recovered/Not Resolved]
  - Asthenia [Unknown]
  - Therapy non-responder [Unknown]

NARRATIVE: CASE EVENT DATE: 20221106
